FAERS Safety Report 4359687-4 (Version None)
Quarter: 2004Q2

REPORT INFORMATION
  Report Type: 
  Country: None (occurrence: None)
  Receive Date: 20040517
  Receipt Date: 20040517
  Transmission Date: 20050107
  Serious: Yes (Hospitalization)
  Sender: FDA-Public Use
  Company Number: None

PATIENT
  Age: 85 Year
  Sex: Male
  Weight: 84.8226 kg

DRUGS (1)
  1. NAMENDA [Suspect]
     Indication: DEMENTIA
     Dosage: 5 MG DAILY ORAL
     Route: 048
     Dates: start: 20040417, end: 20040513

REACTIONS (2)
  - LOSS OF CONSCIOUSNESS [None]
  - SYNCOPE [None]
